FAERS Safety Report 5814520-6 (Version None)
Quarter: 2008Q3

REPORT INFORMATION
  Report Type: 
  Country: None (occurrence: None)
  Receive Date: 20080718
  Receipt Date: 20070727
  Transmission Date: 20090109
  Serious: No
  Sender: FDA-Public Use
  Company Number: US-KINGPHARMUSA00001-K200700954

PATIENT

DRUGS (7)
  1. LEVOXYL [Suspect]
     Indication: THYROID OPERATION
     Route: 048
     Dates: start: 20020101, end: 20060101
  2. LEVOXYL [Suspect]
     Dosage: 125 MCG, QD
     Route: 048
     Dates: start: 20060101, end: 20070101
  3. LEVOXYL [Suspect]
     Dosage: 112 MCG, QD
     Route: 048
     Dates: start: 20070101, end: 20070401
  4. LEVOXYL [Suspect]
     Dosage: 100 MCG, QD
     Route: 048
     Dates: start: 20070401, end: 20070101
  5. LEVOXYL [Suspect]
     Dosage: 88 MCG, QD
     Route: 048
     Dates: start: 20070101, end: 20070701
  6. LEVOXYL [Suspect]
     Dosage: 88 MCG, QOD
     Route: 048
     Dates: start: 20070725
  7. LEVOXYL [Suspect]
     Dosage: 112 MCG, QOD
     Route: 048
     Dates: start: 20070725

REACTIONS (8)
  - ACCIDENT [None]
  - ANXIETY [None]
  - FEELING JITTERY [None]
  - HYPERHIDROSIS [None]
  - HYPERTHYROIDISM [None]
  - INSOMNIA [None]
  - MALAISE [None]
  - PALPITATIONS [None]
